FAERS Safety Report 4707681-3 (Version None)
Quarter: 2005Q2

REPORT INFORMATION
  Report Type: 
  Country: None (occurrence: None)
  Receive Date: 20050629
  Receipt Date: 20050519
  Transmission Date: 20051028
  Serious: No
  Sender: FDA-Public Use
  Company Number: 05P-163-0300870-00

PATIENT
  Age: 62 Year
  Sex: Female
  Weight: 100 kg

DRUGS (9)
  1. HUMIRA [Suspect]
     Indication: RHEUMATOID ARTHRITIS
     Dosage: SEE IMAGE
     Route: 058
     Dates: start: 20031101, end: 20040101
  2. HUMIRA [Suspect]
     Indication: RHEUMATOID ARTHRITIS
     Dosage: SEE IMAGE
     Route: 058
     Dates: start: 20040101
  3. LORATADINE [Concomitant]
  4. FLUOXETINE HCL [Concomitant]
  5. ESTRACE [Concomitant]
  6. LEVOTHYROXINE SODIUM [Concomitant]
  7. ZONISAMIDE [Concomitant]
  8. GLUCOSAMINE [Concomitant]
  9. MULTI-VITAMINS [Concomitant]

REACTIONS (2)
  - RASH PAPULAR [None]
  - RASH PRURITIC [None]
